FAERS Safety Report 20869419 (Version 1)
Quarter: 2022Q2

REPORT INFORMATION
  Report Type: Report from Study
  Country: FR (occurrence: FR)
  Receive Date: 20220524
  Receipt Date: 20220524
  Transmission Date: 20220720
  Serious: Yes (Life-Threatening)
  Sender: FDA-Public Use
  Company Number: FR-BRISTOL-MYERS SQUIBB COMPANY-2022-045203

PATIENT
  Age: 70 Year
  Sex: Female
  Weight: 61 kg

DRUGS (8)
  1. POMALIDOMIDE [Suspect]
     Active Substance: POMALIDOMIDE
     Indication: Plasma cell myeloma refractory
     Dosage: DAY 1, CYCLE 1
     Route: 065
     Dates: start: 20210114
  2. POMALIDOMIDE [Suspect]
     Active Substance: POMALIDOMIDE
     Dosage: NO. OF CYCLE- 12?21 DAY OF CYCLE
     Route: 065
     Dates: start: 20211216
  3. ISATUXIMAB [Suspect]
     Active Substance: ISATUXIMAB
     Indication: Plasma cell myeloma refractory
     Dosage: DAY 1, CYCLE 1
     Route: 065
     Dates: start: 20210114
  4. ISATUXIMAB [Suspect]
     Active Substance: ISATUXIMAB
     Dosage: NO. OF CYCLE- 12?15 DAY OF CYCLE
     Route: 065
     Dates: start: 20211210
  5. CARFILZOMIB [Suspect]
     Active Substance: CARFILZOMIB
     Indication: Plasma cell myeloma refractory
     Dosage: DAY 1, CYCLE 1
     Route: 065
     Dates: start: 20210115
  6. CARFILZOMIB [Suspect]
     Active Substance: CARFILZOMIB
     Dosage: NO. OF CYCLE- 12?15 DAY OF CYCLE
     Route: 065
     Dates: start: 20211210
  7. DEXAMETHASONE [Concomitant]
     Active Substance: DEXAMETHASONE
     Indication: Plasma cell myeloma refractory
     Dosage: DAY 1, CYCLE 1
     Route: 048
     Dates: start: 20210114
  8. DEXAMETHASONE [Concomitant]
     Active Substance: DEXAMETHASONE
     Dosage: NO. OF CYCLE-12?22 DAY OF CYCLE
     Route: 048
     Dates: start: 20211217

REACTIONS (1)
  - Lymphopenia [Recovered/Resolved]

NARRATIVE: CASE EVENT DATE: 20211221
